FAERS Safety Report 7523395-9 (Version None)
Quarter: 2011Q2

REPORT INFORMATION
  Report Type: 
  Country: None (occurrence: None)
  Receive Date: 20110603
  Receipt Date: 20110527
  Transmission Date: 20111010
  Serious: Yes (Death, Hospitalization)
  Sender: FDA-Public Use
  Company Number: B0723140A

PATIENT
  Age: 35 Year
  Sex: Male

DRUGS (1)
  1. AVANDIA [Suspect]
     Indication: DIABETES MELLITUS
     Route: 048
     Dates: start: 20061201, end: 20080401

REACTIONS (3)
  - FLUID RETENTION [None]
  - MYOCARDIAL INFARCTION [None]
  - DEATH [None]
